FAERS Safety Report 18729658 (Version 1)
Quarter: 2021Q1

REPORT INFORMATION
  Report Type: Spontaneous
  Country: US (occurrence: US)
  Receive Date: 20210112
  Receipt Date: 20210112
  Transmission Date: 20210419
  Serious: Yes (Death, Hospitalization)
  Sender: FDA-Public Use
  Company Number: US-PFIZER INC-2021014820

PATIENT
  Age: 70 Year
  Sex: Female

DRUGS (6)
  1. OMEPRAZOLE. [Suspect]
     Active Substance: OMEPRAZOLE
     Dosage: UNK (INGESTION)
     Route: 048
  2. GABAPENTIN. [Suspect]
     Active Substance: GABAPENTIN
     Dosage: UNK (INGESTION)
     Route: 048
  3. DIGOXIN. [Suspect]
     Active Substance: DIGOXIN
     Dosage: UNK (INGESTION)
     Route: 048
  4. MELOXICAM. [Suspect]
     Active Substance: MELOXICAM
     Dosage: UNK (INGESTION)
     Route: 048
  5. AMIODARONE HCL [Suspect]
     Active Substance: AMIODARONE HYDROCHLORIDE
     Dosage: UNK (INGESTION)
     Route: 048
  6. APIXABAN [Suspect]
     Active Substance: APIXABAN
     Dosage: UNK (INGESTION)
     Route: 048

REACTIONS (1)
  - Suspected suicide [Fatal]

NARRATIVE: CASE EVENT DATE: 2019
